FAERS Safety Report 9901110 (Version 1)
Quarter: 2014Q1

REPORT INFORMATION
  Report Type: Spontaneous
  Country: US (occurrence: US)
  Receive Date: 20140217
  Receipt Date: 20140217
  Transmission Date: 20141002
  Serious: No
  Sender: FDA-Public Use
  Company Number: US-PFIZER INC-2014039883

PATIENT
  Age: 51 Year
  Sex: Male
  Weight: 93 kg

DRUGS (7)
  1. INLYTA [Suspect]
     Indication: METASTATIC RENAL CELL CARCINOMA
     Dosage: 5 MG, 2X/DAY
     Dates: start: 2013
  2. TOPIRAMATE [Interacting]
     Indication: HEADACHE
     Dosage: 50 MG, DAILY (TWO TABLETS OF 25 MG EACH)
     Route: 048
  3. METHADONE [Interacting]
     Indication: PAIN
     Dosage: UNK
  4. DEPAKOTE [Interacting]
     Dosage: 250 MG, 2X/DAY
  5. OMEPRAZOLE [Concomitant]
     Indication: GASTRIC DISORDER
     Dosage: 20 MG, DAILY
  6. AMLODIPINE [Concomitant]
     Indication: HYPERTENSION
     Dosage: 10 MG, DAILY
  7. LOSARTAN [Concomitant]
     Indication: HYPERTENSION
     Dosage: 100 MG, DAILY

REACTIONS (3)
  - Drug interaction [Unknown]
  - Disease progression [Unknown]
  - Metastatic renal cell carcinoma [Unknown]
